FAERS Safety Report 11771169 (Version 2)
Quarter: 2016Q1

REPORT INFORMATION
  Report Type: Spontaneous
  Country: US (occurrence: US)
  Receive Date: 20151124
  Receipt Date: 20160317
  Transmission Date: 20160525
  Serious: No
  Sender: FDA-Public Use
  Company Number: US-009507513-1511USA012621

PATIENT
  Age: 62 Year
  Sex: Female

DRUGS (3)
  1. PROVENTIL [Suspect]
     Active Substance: ALBUTEROL
     Dosage: 90 MCG, 2 PUFFS Q4H, PRN
     Route: 055
     Dates: start: 20140929
  2. PROVENTIL [Suspect]
     Active Substance: ALBUTEROL
     Indication: ASTHMA
     Dosage: 90 MCG, 2 PUFFS Q4H, PRN
     Route: 055
  3. PROVENTIL [Suspect]
     Active Substance: ALBUTEROL
     Dosage: 90 MCG, 2 PUFFS Q4H, PRN
     Route: 055

REACTIONS (6)
  - Product quality issue [Not Recovered/Not Resolved]
  - No adverse event [Unknown]
  - Drug dose omission [Unknown]
  - Product quality issue [Recovered/Resolved]
  - Product quality issue [Recovered/Resolved]
  - Product quality issue [Recovered/Resolved]

NARRATIVE: CASE EVENT DATE: 20150916
